FAERS Safety Report 4774103-6 (Version None)
Quarter: 2005Q3

REPORT INFORMATION
  Report Type: 
  Country: None (occurrence: None)
  Receive Date: 20050914
  Receipt Date: 20050401
  Transmission Date: 20060218
  Serious: Yes (Other)
  Sender: FDA-Public Use
  Company Number: 163-20785-05040145

PATIENT

DRUGS (1)
  1. THALOMID [Suspect]
     Indication: NON-HODGKIN'S LYMPHOMA
     Dosage: 200MG 1-2 WEEKS TITRATED BY 100MG Q1-2WKS UNTIL 800MG, QHS, ORAL
     Route: 048
     Dates: start: 20030403

REACTIONS (3)
  - EMBOLISM [None]
  - NEUROPATHY [None]
  - PULMONARY EMBOLISM [None]
